FAERS Safety Report 9441136 (Version 1)
Quarter: 2013Q3

REPORT INFORMATION
  Report Type: Spontaneous
  Country: MT (occurrence: MT)
  Receive Date: 20130805
  Receipt Date: 20130805
  Transmission Date: 20140515
  Serious: Yes (Hospitalization)
  Sender: FDA-Public Use
  Company Number: MT-GLAXOSMITHKLINE-B0912813A

PATIENT
  Age: 11 Year
  Sex: Male

DRUGS (3)
  1. ACYCLOVIR [Suspect]
     Indication: ENCEPHALITIS VIRAL
     Dosage: 500MGM2 THREE TIMES PER DAY
     Route: 065
  2. CEFTRIAXONE [Concomitant]
     Route: 065
  3. CLARITHROMYCIN [Concomitant]
     Route: 065

REACTIONS (5)
  - Nephropathy [Recovered/Resolved]
  - Renal failure acute [Recovered/Resolved]
  - Blood creatinine increased [Unknown]
  - Blood urea increased [Unknown]
  - Blood pressure increased [Unknown]
